FAERS Safety Report 25555613 (Version 3)
Quarter: 2025Q3

REPORT INFORMATION
  Report Type: Report from Study
  Country: US (occurrence: US)
  Receive Date: 20250715
  Receipt Date: 20250811
  Transmission Date: 20251020
  Serious: Yes (Hospitalization)
  Sender: JAZZ
  Company Number: US-JAZZ PHARMACEUTICALS-2025-US-017227

PATIENT
  Sex: Female
  Weight: 38.5 kg

DRUGS (1)
  1. EPIDIOLEX [Suspect]
     Active Substance: CANNABIDIOL
     Indication: Epilepsy
     Dosage: 3.5 MILLILITER, BID

REACTIONS (5)
  - Seizure [Unknown]
  - Agitation [Unknown]
  - Confusional state [Unknown]
  - Visual impairment [Unknown]
  - Off label use [Unknown]
